FAERS Safety Report 7678568-1 (Version None)
Quarter: 2011Q3

REPORT INFORMATION
  Report Type: 
  Country: None (occurrence: None)
  Receive Date: 20110811
  Receipt Date: 20110810
  Transmission Date: 20111222
  Serious: Yes (Life-Threatening)
  Sender: FDA-Public Use
  Company Number: FR-BAYER-2011-070844

PATIENT
  Age: 51 Year
  Sex: Male

DRUGS (3)
  1. DIAMICRON [Concomitant]
     Indication: DIABETES MELLITUS
  2. ULTRAVIST 150 [Suspect]
     Indication: COMPUTERISED TOMOGRAM KIDNEY
     Dosage: 100 ML, QD
     Route: 042
     Dates: start: 20110726, end: 20110726
  3. METFORMIN HCL [Concomitant]
     Indication: DIABETES MELLITUS

REACTIONS (8)
  - RASH [None]
  - EYE MOVEMENT DISORDER [None]
  - HYPOTENSION [None]
  - BRADYPNOEA [None]
  - DYSKINESIA [None]
  - LOSS OF CONSCIOUSNESS [None]
  - URINE ABNORMALITY [None]
  - HYPERHIDROSIS [None]
